FAERS Safety Report 7572894-2 (Version None)
Quarter: 2011Q2

REPORT INFORMATION
  Report Type: 
  Country: None (occurrence: None)
  Receive Date: 20110627
  Receipt Date: 20110620
  Transmission Date: 20111010
  Serious: Yes (Death, Life-Threatening, Hospitalization)
  Sender: FDA-Public Use
  Company Number: HR-ELI_LILLY_AND_COMPANY-HR201101007362

PATIENT
  Age: 75 Year
  Sex: Male

DRUGS (3)
  1. NORMABEL [Concomitant]
     Indication: INSOMNIA
     Dosage: 5 MG, 3/D
  2. ZYPREXA [Suspect]
     Indication: SCHIZOPHRENIA
     Dosage: 5 MG, UNK
     Dates: start: 20080101, end: 20110124
  3. AKINETON /00079501/ [Concomitant]
     Indication: ANXIETY
     Dosage: UNK, 2/D

REACTIONS (4)
  - BRONCHOPNEUMONIA [None]
  - URINARY TRACT INFECTION [None]
  - HYPERGLYCAEMIA [None]
  - ELECTROCARDIOGRAM ABNORMAL [None]
